FAERS Safety Report 22787759 (Version 7)
Quarter: 2025Q2

REPORT INFORMATION
  Report Type: Spontaneous
  Country: ES (occurrence: ES)
  Receive Date: 20230804
  Receipt Date: 20250524
  Transmission Date: 20250717
  Serious: Yes (Other)
  Sender: CELLTRION
  Company Number: ES-CELLTRION INC.-2022ES017115

PATIENT

DRUGS (14)
  1. ADALIMUMAB [Suspect]
     Active Substance: ADALIMUMAB
     Indication: Alopecia scarring
     Dosage: 40 MG, Q2W/40 MILLIGRAM, Q2WK/ADDITIONAL INFORMATION ON DRUG (FREE TEXT): DOSAGE1: UNIT=NOT AVAILABL
     Route: 058
  2. ADALIMUMAB [Suspect]
     Active Substance: ADALIMUMAB
     Route: 058
  3. ADALIMUMAB [Suspect]
     Active Substance: ADALIMUMAB
     Route: 058
  4. ADALIMUMAB [Suspect]
     Active Substance: ADALIMUMAB
     Route: 058
  5. IXEKIZUMAB [Suspect]
     Active Substance: IXEKIZUMAB
     Indication: Alopecia scarring
     Route: 058
  6. IXEKIZUMAB [Suspect]
     Active Substance: IXEKIZUMAB
     Dosage: 80 MG, FROM THE 16 WEEKS (12 WEEKS)
     Route: 058
  7. IXEKIZUMAB [Suspect]
     Active Substance: IXEKIZUMAB
     Route: 058
  8. RIFAMPIN [Suspect]
     Active Substance: RIFAMPIN
     Indication: Alopecia scarring
     Route: 065
  9. ISOTRETINOIN [Suspect]
     Active Substance: ISOTRETINOIN
     Indication: Alopecia scarring
     Route: 065
  10. TRIAMCINOLONE [Suspect]
     Active Substance: TRIAMCINOLONE
     Indication: Alopecia scarring
     Route: 065
  11. DOXYCYCLINE [Suspect]
     Active Substance: DOXYCYCLINE
     Indication: Alopecia scarring
     Route: 065
  12. DAPSONE [Suspect]
     Active Substance: DAPSONE
     Indication: Alopecia scarring
     Route: 048
  13. CLINDAMYCIN [Suspect]
     Active Substance: CLINDAMYCIN
     Indication: Alopecia scarring
     Route: 065
  14. CLOBETASOL [Suspect]
     Active Substance: CLOBETASOL
     Indication: Alopecia scarring
     Route: 061

REACTIONS (7)
  - Condition aggravated [Unknown]
  - Paradoxical drug reaction [Recovered/Resolved]
  - Alopecia scarring [Recovering/Resolving]
  - Drug ineffective [Unknown]
  - Skin candida [Unknown]
  - Drug effective for unapproved indication [Unknown]
  - Off label use [Unknown]
